FAERS Safety Report 4355663-6 (Version None)
Quarter: 2004Q2

REPORT INFORMATION
  Report Type: 
  Country: None (occurrence: None)
  Receive Date: 20040510
  Receipt Date: 20040216
  Transmission Date: 20050107
  Serious: Yes (Hospitalization)
  Sender: FDA-Public Use
  Company Number: CA-MERCK-0402CAN00069

PATIENT
  Age: 57 Year
  Sex: Female

DRUGS (12)
  1. CLONAZEPAM [Concomitant]
     Indication: MUSCLE SPASMS
     Route: 065
  2. CLONAZEPAM [Concomitant]
     Indication: ANXIETY
     Route: 065
  3. DOMPERIDONE [Concomitant]
     Indication: GASTRIC DISORDER
     Route: 065
  4. HYDROCHLOROTHIAZIDE AND TRIAMTERENE [Concomitant]
     Indication: BLOOD PRESSURE
     Route: 065
  5. LANSOPRAZOLE [Concomitant]
     Indication: HYPERCHLORHYDRIA
     Route: 065
  6. NITROFURANTOIN [Concomitant]
     Indication: INFECTION PROPHYLAXIS
     Route: 065
  7. SENNA [Concomitant]
     Indication: CONSTIPATION
     Route: 065
  8. SYPRINE [Suspect]
     Indication: HEPATO-LENTICULAR DEGENERATION
     Route: 048
     Dates: start: 20011113, end: 20040201
  9. VENLAFAXINE HYDROCHLORIDE [Concomitant]
     Indication: DEPRESSION
     Route: 065
  10. VENLAFAXINE HYDROCHLORIDE [Concomitant]
     Indication: ANXIETY
     Route: 065
  11. WARFARIN SODIUM [Concomitant]
     Indication: ANTICOAGULANT THERAPY
     Route: 065
  12. ZOPICLONE [Concomitant]
     Indication: SLEEP DISORDER
     Route: 065

REACTIONS (1)
  - MYASTHENIA GRAVIS [None]
